FAERS Safety Report 19656655 (Version 3)
Quarter: 2022Q1

REPORT INFORMATION
  Report Type: Spontaneous
  Country: US (occurrence: US)
  Receive Date: 20210804
  Receipt Date: 20220107
  Transmission Date: 20220423
  Serious: No
  Sender: FDA-Public Use
  Company Number: US-BEH-2021134576

PATIENT
  Sex: Female

DRUGS (7)
  1. HIZENTRA [Suspect]
     Active Substance: HUMAN IMMUNOGLOBULIN G
     Indication: Myasthenia gravis
     Dosage: 28 MILLIGRAM, QW
     Route: 058
     Dates: start: 20210518
  2. HIZENTRA [Suspect]
     Active Substance: HUMAN IMMUNOGLOBULIN G
     Dosage: 2 GRAM, QW
     Route: 058
     Dates: start: 20210518, end: 202112
  3. MIRENA [Concomitant]
     Active Substance: LEVONORGESTREL
     Indication: Polymenorrhoea
  4. DIPHENHYDRAMINE [Concomitant]
     Active Substance: DIPHENHYDRAMINE
     Indication: Premedication
  5. DIPHENHYDRAMINE [Concomitant]
     Active Substance: DIPHENHYDRAMINE
     Indication: Premedication
  6. ACETAMINOPHEN [Concomitant]
     Active Substance: ACETAMINOPHEN
     Indication: Premedication
  7. ACETAMINOPHEN [Concomitant]
     Active Substance: ACETAMINOPHEN
     Indication: Premedication

REACTIONS (4)
  - Infusion site pruritus [Unknown]
  - Headache [Unknown]
  - No adverse event [Unknown]
  - Off label use [Unknown]
